FAERS Safety Report 5448514-X (Version None)
Quarter: 2007Q3

REPORT INFORMATION
  Report Type: 
  Country: None (occurrence: None)
  Receive Date: 20070911
  Receipt Date: 20070905
  Transmission Date: 20080115
  Serious: Yes (Other)
  Sender: FDA-Public Use
  Company Number: PHEH2007US11926

PATIENT
  Age: 78 Year
  Sex: Female
  Weight: 63.492 kg

DRUGS (4)
  1. TEKTURNA [Suspect]
     Indication: HYPERTENSION
     Dosage: 150 MG, QD
     Route: 048
  2. TEKTURNA [Suspect]
     Dosage: 75 MG, QD
     Route: 048
  3. TEKTURNA [Suspect]
     Dosage: 150 MG, QD
     Route: 048
     Dates: end: 20070903
  4. BENICAR [Concomitant]

REACTIONS (4)
  - ABDOMINAL PAIN [None]
  - DIARRHOEA [None]
  - DIARRHOEA HAEMORRHAGIC [None]
  - NAUSEA [None]
